FAERS Safety Report 12728814 (Version 1)
Quarter: 2016Q3

REPORT INFORMATION
  Report Type: Spontaneous
  Country: GB (occurrence: GB)
  Receive Date: 20160909
  Receipt Date: 20160909
  Transmission Date: 20161109
  Serious: Yes (Other)
  Sender: FDA-Public Use
  Company Number: GB-TEVA-689283ACC

PATIENT
  Age: 43 Year
  Sex: Female
  Weight: 95 kg

DRUGS (11)
  1. TEGRETOL [Concomitant]
     Active Substance: CARBAMAZEPINE
  2. IBUPROFEN. [Concomitant]
     Active Substance: IBUPROFEN
     Dosage: 1 TABLET UP TO FOUR TIMES PER DAY AS NEEDED WITH FOOD, MAXIMUM 6 PER DAY
  3. NITROFURANTOIN. [Suspect]
     Active Substance: NITROFURANTOIN
     Indication: URINARY TRACT INFECTION
     Dosage: 400 MILLIGRAM DAILY;
     Dates: start: 20150213, end: 20150216
  4. CETIRIZINE [Concomitant]
     Active Substance: CETIRIZINE HYDROCHLORIDE
     Dosage: 1 DAILY
  5. TEGRETOL [Concomitant]
     Active Substance: CARBAMAZEPINE
     Dosage: 200 MILLIGRAM DAILY; AS DIRECTED
  6. CARBAMAZEPINE. [Concomitant]
     Active Substance: CARBAMAZEPINE
     Indication: SEIZURE
     Dosage: INCREASED ON 29 JAN FROM 200MG 1 AT NIGHT TO 300MG 2 TWICE A DAY.
  7. OMEPRAZOLE. [Concomitant]
     Active Substance: OMEPRAZOLE
     Dosage: 40 MILLIGRAM DAILY;
  8. CLINDAMYCIN [Concomitant]
     Active Substance: CLINDAMYCIN\CLINDAMYCIN PHOSPHATE
     Dosage: 1 DOSAGE FORMS DAILY; AT NIGHT.
     Route: 067
  9. NITROFURANTOIN. [Suspect]
     Active Substance: NITROFURANTOIN
     Indication: URINARY TRACT INFECTION
     Dosage: 400 MILLIGRAM DAILY;
     Dates: start: 20140913, end: 20140916
  10. PIVMECILLINAM [Concomitant]
     Active Substance: PENICILLIN
     Dosage: 400 MILLIGRAM DAILY;
  11. CLONIDINE. [Concomitant]
     Active Substance: CLONIDINE
     Dosage: UP TO 6 TABLETS DAILY.

REACTIONS (1)
  - Epilepsy [Not Recovered/Not Resolved]
